FAERS Safety Report 11891964 (Version 1)
Quarter: 2016Q1

REPORT INFORMATION
  Report Type: Spontaneous
  Country: US (occurrence: None)
  Receive Date: 20160105
  Receipt Date: 20160105
  Transmission Date: 20160526
  Serious: No
  Sender: FDA-Public Use
  Company Number: None

PATIENT
  Age: 50 Year
  Sex: Female
  Weight: 77.11 kg

DRUGS (9)
  1. CLARITIN (GENERIC) [Concomitant]
  2. SINGULAIR (GENERIC) [Concomitant]
  3. CELECOXIB 200 MG APOTEX [Suspect]
     Active Substance: CELECOXIB
     Indication: PAIN
     Route: 048
  4. FLAX OIL CAPSULES [Concomitant]
  5. QVAR [Concomitant]
     Active Substance: BECLOMETHASONE DIPROPIONATE
  6. RESTASIS [Concomitant]
     Active Substance: CYCLOSPORINE
  7. CELECOXIB 200 MG APOTEX [Suspect]
     Active Substance: CELECOXIB
     Indication: MUSCLE TIGHTNESS
     Route: 048
  8. CELECOXIB 200 MG APOTEX [Suspect]
     Active Substance: CELECOXIB
     Indication: UNDIFFERENTIATED CONNECTIVE TISSUE DISEASE
     Route: 048
  9. VIT-D [Concomitant]

REACTIONS (6)
  - Drug ineffective [None]
  - Product substitution issue [None]
  - Migraine [None]
  - Product quality control issue [None]
  - Muscle tightness [None]
  - Pain [None]
